FAERS Safety Report 14029409 (Version 1)
Quarter: 2017Q4

REPORT INFORMATION
  Report Type: Spontaneous
  Country: US (occurrence: US)
  Receive Date: 20171002
  Receipt Date: 20171002
  Transmission Date: 20180321
  Serious: No
  Sender: FDA-Public Use
  Company Number: US-JAZZ-2017-US-011357

PATIENT
  Sex: Female

DRUGS (6)
  1. MIRALAX [Concomitant]
     Active Substance: POLYETHYLENE GLYCOL 3350
  2. PROVIGIL [Concomitant]
     Active Substance: MODAFINIL
  3. XYREM [Suspect]
     Active Substance: SODIUM OXYBATE
     Dosage: 4.5G, QD, SECOND DOSE
     Route: 048
     Dates: start: 201701, end: 2017
  4. XYREM [Suspect]
     Active Substance: SODIUM OXYBATE
     Indication: CATAPLEXY
     Dosage: DOSE ADJUSTMENTS
     Route: 048
     Dates: start: 201606, end: 201701
  5. XYREM [Suspect]
     Active Substance: SODIUM OXYBATE
     Dosage: 4G, QD, FIRST DOSE
     Route: 048
     Dates: start: 201701, end: 201704
  6. XYREM [Suspect]
     Active Substance: SODIUM OXYBATE
     Indication: NARCOLEPSY
     Dosage: 2.25G, BID
     Route: 048
     Dates: start: 201606, end: 201606

REACTIONS (3)
  - Paraesthesia [Unknown]
  - Burning sensation [Unknown]
  - Throat irritation [Unknown]
